FAERS Safety Report 7069765-7 (Version None)
Quarter: 2010Q4

REPORT INFORMATION
  Report Type: 
  Country: None (occurrence: None)
  Receive Date: 20101028
  Receipt Date: 20100602
  Transmission Date: 20110411
  Serious: No
  Sender: FDA-Public Use
  Company Number: US-WYE-H15655410

PATIENT
  Sex: Male
  Weight: 86.26 kg

DRUGS (1)
  1. PROTONIX [Suspect]
     Indication: GASTROOESOPHAGEAL REFLUX DISEASE
     Dosage: STARTED 40 MG QD THEN BEGAN SKIPPING ONE OR TWO DOSES THEN EVERY OTHER DAY OR EVERY THIRD DAY

REACTIONS (4)
  - CONDITION AGGRAVATED [None]
  - DRUG SCREEN FALSE POSITIVE [None]
  - GASTROOESOPHAGEAL REFLUX DISEASE [None]
  - INTENTIONAL DRUG MISUSE [None]
